FAERS Safety Report 9926005 (Version 1)
Quarter: 2014Q1

REPORT INFORMATION
  Report Type: Spontaneous
  Country: GB (occurrence: GB)
  Receive Date: 20140226
  Receipt Date: 20140226
  Transmission Date: 20141002
  Serious: Yes (Other)
  Sender: FDA-Public Use
  Company Number: GB-TEVA-463264ISR

PATIENT
  Age: 18 Year
  Sex: Female
  Weight: 57.6 kg

DRUGS (2)
  1. CITALOPRAM [Suspect]
     Indication: DEPRESSION
     Route: 048
     Dates: start: 20140201
  2. MICROGYNON [Concomitant]

REACTIONS (1)
  - Pupils unequal [Not Recovered/Not Resolved]
